FAERS Safety Report 6801301-X (Version None)
Quarter: 2010Q2

REPORT INFORMATION
  Report Type: 
  Country: None (occurrence: None)
  Receive Date: 20100629
  Receipt Date: 20100621
  Transmission Date: 20101027
  Serious: Yes (Hospitalization)
  Sender: FDA-Public Use
  Company Number: US-SANOFI-AVENTIS-2010SA035951

PATIENT
  Age: 76 Year
  Sex: Male

DRUGS (3)
  1. LASIX [Suspect]
     Route: 065
  2. ADVAIR DISKUS 100/50 [Suspect]
     Dosage: 100/50 MCG STRENGTH DOSE:2 PUFF(S)
     Route: 055
     Dates: start: 20100401
  3. ALL OTHER THERAPEUTIC PRODUCTS [Suspect]
     Route: 065

REACTIONS (2)
  - ANAEMIA [None]
  - RENAL FAILURE [None]
